FAERS Safety Report 7918403-7 (Version None)
Quarter: 2011Q4

REPORT INFORMATION
  Report Type: 
  Country: None (occurrence: None)
  Receive Date: 20111116
  Receipt Date: 20111115
  Transmission Date: 20120403
  Serious: Yes (Death, Life-Threatening)
  Sender: FDA-Public Use
  Company Number: PH-B.I. PHARMACEUTICALS,INC./RIDGEFIELD-2011-CS-01068RP

PATIENT
  Age: 34 Year
  Sex: Male

DRUGS (4)
  1. PRADAXA [Suspect]
     Indication: CEREBROVASCULAR ACCIDENT PROPHYLAXIS
     Dosage: 300 MG
     Route: 048
     Dates: start: 20111001, end: 20111001
  2. FUROSEMIDE [Concomitant]
     Route: 042
  3. DIGOXIN [Concomitant]
  4. DIURETIC [Concomitant]

REACTIONS (3)
  - HAEMATOMA [None]
  - ABDOMINAL PAIN [None]
  - HYPOGLYCAEMIA [None]
